FAERS Safety Report 13871806 (Version 1)
Quarter: 2017Q3

REPORT INFORMATION
  Report Type: Spontaneous
  Country: FR (occurrence: FR)
  Receive Date: 20170816
  Receipt Date: 20170816
  Transmission Date: 20171127
  Serious: Yes (Other)
  Sender: FDA-Public Use
  Company Number: FR-ACCORD-044637

PATIENT
  Age: 49 Year
  Sex: Male

DRUGS (2)
  1. IMMUNOGLOBULIN (IVIG) [Concomitant]
     Active Substance: HUMAN IMMUNOGLOBULIN G
     Indication: DERMATOMYOSITIS
     Route: 042
  2. METHOTREXATE. [Suspect]
     Active Substance: METHOTREXATE
     Indication: DERMATOMYOSITIS
     Dates: start: 20150225

REACTIONS (3)
  - Off label use [Unknown]
  - Pulmonary embolism [Recovering/Resolving]
  - Pulmonary infarction [Unknown]

NARRATIVE: CASE EVENT DATE: 201503
